FAERS Safety Report 7285364-6 (Version None)
Quarter: 2011Q1

REPORT INFORMATION
  Report Type: 
  Country: None (occurrence: None)
  Receive Date: 20110210
  Receipt Date: 20110126
  Transmission Date: 20110831
  Serious: Yes (Other)
  Sender: FDA-Public Use
  Company Number: US-ROCHE-757855

PATIENT
  Sex: Female

DRUGS (7)
  1. HERCEPTIN [Suspect]
     Route: 042
     Dates: start: 20090101, end: 20091101
  2. TYKERB [Concomitant]
  3. XELODA [Suspect]
     Route: 048
     Dates: start: 20091101, end: 20100201
  4. HERCEPTIN [Suspect]
     Route: 042
     Dates: start: 20100801
  5. TAXOTERE [Concomitant]
     Dates: start: 20090101
  6. NAVELBINE [Concomitant]
     Dates: start: 20100801
  7. CARBOPLATIN [Concomitant]
     Dates: start: 20090101

REACTIONS (2)
  - MALIGNANT PLEURAL EFFUSION [None]
  - DYSPNOEA [None]
